FAERS Safety Report 8934862 (Version 1)
Quarter: 2012Q4

REPORT INFORMATION
  Report Type: 
  Country: US (occurrence: US)
  Receive Date: 20121129
  Receipt Date: 20121129
  Transmission Date: 20130627
  Serious: Yes (Hospitalization, Congenital Anomaly, Other)
  Sender: FDA-Public Use
  Company Number: US-PFIZER INC-2012296348

PATIENT
  Age: 1 Day
  Sex: Female
  Weight: 3.6 kg

DRUGS (3)
  1. ZOLOFT [Suspect]
     Indication: DEPRESSION
     Dosage: UNK
     Route: 064
     Dates: start: 1992
  2. ZOLOFT [Suspect]
     Indication: ANXIETY
     Dosage: 50 mg, UNK
     Route: 064
     Dates: start: 20010901
  3. PRENATAL VITAMINS [Concomitant]
     Dosage: UNK
     Route: 064

REACTIONS (15)
  - Maternal exposure timing unspecified [Unknown]
  - Ventricular septal defect [Recovered/Resolved]
  - Patent ductus arteriosus [Unknown]
  - Atrioventricular septal defect [Recovered/Resolved]
  - Atrial septal defect [Recovered/Resolved]
  - Infantile spasms [Unknown]
  - Trisomy 21 [Unknown]
  - Congenital hydronephrosis [Recovered/Resolved]
  - Subacute endocarditis [Unknown]
  - Neonatal respiratory distress syndrome [Unknown]
  - Mitral valve incompetence [Unknown]
  - Cerebral ventricle dilatation [Recovered/Resolved]
  - Heart valve incompetence [Unknown]
  - Dilatation atrial [Unknown]
  - Developmental delay [Unknown]
